FAERS Safety Report 22306332 (Version 1)
Quarter: 2023Q2

REPORT INFORMATION
  Report Type: Spontaneous
  Country: RO (occurrence: RO)
  Receive Date: 20230511
  Receipt Date: 20230511
  Transmission Date: 20230721
  Serious: Yes (Other)
  Sender: FDA-Public Use
  Company Number: RO-BRISTOL-MYERS SQUIBB COMPANY-2023-065829

PATIENT
  Age: 60 Year
  Sex: Male

DRUGS (4)
  1. NIVOLUMAB [Suspect]
     Active Substance: NIVOLUMAB
     Indication: Bronchial neoplasm
     Dosage: NIVO 360 MG; FREQ: Q3WKS (X35)
     Dates: start: 20180917, end: 20200911
  2. IPILIMUMAB [Suspect]
     Active Substance: IPILIMUMAB
     Indication: Bronchial neoplasm
     Dosage: Q6WKS (X18)
     Dates: start: 20180917, end: 20200911
  3. CARBOPLATIN [Concomitant]
     Active Substance: CARBOPLATIN
     Indication: Bronchial neoplasm
     Dosage: AUC=5
  4. PEMETREXED [Concomitant]
     Active Substance: PEMETREXED
     Indication: Bronchial neoplasm
     Dosage: 500 MG/SQM D 1) (X2

REACTIONS (4)
  - Thrombocytopenia [Unknown]
  - Neutropenia [Unknown]
  - Anaemia [Unknown]
  - Nausea [Unknown]
